FAERS Safety Report 6757767-7 (Version None)
Quarter: 2010Q2

REPORT INFORMATION
  Report Type: 
  Country: None (occurrence: None)
  Receive Date: 20100607
  Receipt Date: 20100504
  Transmission Date: 20101027
  Serious: No
  Sender: FDA-Public Use
  Company Number: US-BAYER-201021649NA

PATIENT
  Sex: Female

DRUGS (1)
  1. MIRENA [Suspect]
     Indication: DRUG USE FOR UNKNOWN INDICATION
     Dosage: FREQUENCY CONTINUOUS
     Route: 015
     Dates: start: 20080101

REACTIONS (4)
  - ABDOMINAL PAIN [None]
  - HYPOMENORRHOEA [None]
  - OVARIAN CYST [None]
  - VAGINAL HAEMORRHAGE [None]
